FAERS Safety Report 7036855-4 (Version None)
Quarter: 2010Q4

REPORT INFORMATION
  Report Type: 
  Country: None (occurrence: None)
  Receive Date: 20101011
  Receipt Date: 20100929
  Transmission Date: 20110411
  Serious: Yes (Life-Threatening, Other)
  Sender: FDA-Public Use
  Company Number: US-JNJFOC-20100709121

PATIENT
  Sex: Female

DRUGS (19)
  1. REMICADE [Suspect]
     Indication: PSORIATIC ARTHROPATHY
     Route: 042
  2. HYPERTENSION MEDICATION [Concomitant]
     Indication: HYPERTENSION
  3. DIABETES MEDICATION [Concomitant]
     Indication: DIABETES MELLITUS
  4. ZETIA [Concomitant]
     Route: 048
  5. LIPITOR [Concomitant]
     Route: 048
  6. LISINOPRIL [Concomitant]
     Route: 048
  7. JANUVIA [Concomitant]
     Route: 048
  8. CODEINE SUL TAB [Concomitant]
     Route: 048
  9. OXAZEPAM [Concomitant]
     Route: 048
  10. METHOTREXATE [Concomitant]
     Route: 048
  11. GABAPENTIN [Concomitant]
     Route: 048
  12. HYDROCHLOROTHIAZIDE [Concomitant]
     Route: 048
  13. METFORMIN HCL [Concomitant]
     Route: 048
  14. FLONASE [Concomitant]
     Indication: RHINITIS
  15. FOSAMAX [Concomitant]
     Route: 055
  16. OMEPRAZOLE [Concomitant]
  17. PAROXETINE HCL [Concomitant]
     Route: 048
  18. FOLIC ACID [Concomitant]
     Route: 048
  19. ASPIRIN [Concomitant]
     Route: 048

REACTIONS (3)
  - HYSTERECTOMY [None]
  - PANCREATIC CARCINOMA [None]
  - RASH [None]
